FAERS Safety Report 22122771 (Version 2)
Quarter: 2023Q2

REPORT INFORMATION
  Report Type: Spontaneous
  Country: US (occurrence: US)
  Receive Date: 20230321
  Receipt Date: 20230424
  Transmission Date: 20230721
  Serious: No
  Sender: FDA-Public Use
  Company Number: US-JNJFOC-20230338365

PATIENT

DRUGS (2)
  1. SPRAVATO [Suspect]
     Active Substance: ESKETAMINE
     Indication: Depression
  2. ARIPIPRAZOLE [Concomitant]
     Active Substance: ARIPIPRAZOLE

REACTIONS (1)
  - Drug ineffective [Unknown]
